FAERS Safety Report 17820263 (Version 2)
Quarter: 2020Q2

REPORT INFORMATION
  Report Type: Spontaneous
  Country: US (occurrence: US)
  Receive Date: 20200525
  Receipt Date: 20200615
  Transmission Date: 20200714
  Serious: No
  Sender: FDA-Public Use
  Company Number: US-AMGEN INC.-USASP2020081298

PATIENT
  Age: 76 Year
  Sex: Female

DRUGS (1)
  1. AIMOVIG [Suspect]
     Active Substance: ERENUMAB-AOOE
     Indication: MIGRAINE PROPHYLAXIS
     Dosage: 140 MILLIGRAM, QMO
     Route: 065
     Dates: start: 20200515

REACTIONS (5)
  - Accidental exposure to product [Unknown]
  - Injury associated with device [Unknown]
  - Incorrect dose administered by product [Unknown]
  - Injection site haemorrhage [Unknown]
  - Device use error [Unknown]

NARRATIVE: CASE EVENT DATE: 20200515
